FAERS Safety Report 9840172 (Version 2)
Quarter: 2016Q2

REPORT INFORMATION
  Report Type: Report from Study
  Country: US (occurrence: US)
  Receive Date: 20140124
  Receipt Date: 20160519
  Transmission Date: 20160815
  Serious: Yes (Hospitalization)
  Sender: FDA-Public Use
  Company Number: US-ROCHE-1334935

PATIENT
  Sex: Male
  Weight: 103.51 kg

DRUGS (16)
  1. XOLAIR [Suspect]
     Active Substance: OMALIZUMAB
     Indication: ASTHMA
     Route: 058
  2. NEXIUM [Concomitant]
     Active Substance: ESOMEPRAZOLE MAGNESIUM
     Route: 048
  3. CYCLOBENZAPRINE [Concomitant]
     Active Substance: CYCLOBENZAPRINE
     Route: 065
  4. SYMBICORT [Concomitant]
     Active Substance: BUDESONIDE\FORMOTEROL FUMARATE DIHYDRATE
     Dosage: 160-4.5MCG/ACT AERO TWO PUFF TWO PUFFS TWICE DAILY
     Route: 065
  5. DULERA [Concomitant]
     Active Substance: FORMOTEROL FUMARATE DIHYDRATE\MOMETASONE FUROATE
     Dosage: 200-5MCG/ACT 2 PUFFS BY MOUTH TWICWE DAILY,
     Route: 048
  6. PROAIR HFA [Concomitant]
     Active Substance: ALBUTEROL SULFATE
     Dosage: PRN
     Route: 065
  7. AMBIEN [Concomitant]
     Active Substance: ZOLPIDEM TARTRATE
     Indication: INSOMNIA
     Dosage: PRN
     Route: 048
  8. FLONASE (UNITED STATES) [Concomitant]
     Dosage: 1 PUFF 4 TIMES A DAY
     Route: 011
  9. SINGULAIR [Concomitant]
     Active Substance: MONTELUKAST SODIUM
     Route: 048
  10. LIPITOR [Concomitant]
     Active Substance: ATORVASTATIN CALCIUM
     Route: 048
  11. ALPRAZOLAM. [Concomitant]
     Active Substance: ALPRAZOLAM
     Route: 048
  12. CITALOPRAM HYDROBROMIDE. [Concomitant]
     Active Substance: CITALOPRAM HYDROBROMIDE
     Route: 065
  13. COLACE [Concomitant]
     Active Substance: DOCUSATE SODIUM
     Route: 065
  14. NORVASC [Concomitant]
     Active Substance: AMLODIPINE BESYLATE
     Route: 048
  15. ASPIRIN. [Concomitant]
     Active Substance: ASPIRIN
     Route: 065
  16. COMBIVENT [Concomitant]
     Active Substance: ALBUTEROL SULFATE\IPRATROPIUM BROMIDE
     Dosage: 20-100 MCG/ACT 1 PUFF 4 TIMES A DAY
     Route: 065

REACTIONS (7)
  - Asthma [Unknown]
  - Respiratory distress [Unknown]
  - Cough [Unknown]
  - Wheezing [Unknown]
  - Dyspnoea [Unknown]
  - Sleep apnoea syndrome [Unknown]
  - Chronic respiratory failure [Unknown]
